FAERS Safety Report 20714317 (Version 1)
Quarter: 2022Q2

REPORT INFORMATION
  Report Type: Spontaneous
  Country: US (occurrence: US)
  Receive Date: 20220415
  Receipt Date: 20220415
  Transmission Date: 20220720
  Serious: Yes (Other)
  Sender: FDA-Public Use
  Company Number: US-ALLERGAN-2212332US

PATIENT

DRUGS (1)
  1. DURYSTA [Suspect]
     Active Substance: BIMATOPROST
     Indication: Open angle glaucoma
     Dosage: 0.01 MG, SINGLE
     Route: 031
     Dates: start: 20220412, end: 20220412

REACTIONS (2)
  - Open globe injury [Unknown]
  - Complication of device insertion [Unknown]

NARRATIVE: CASE EVENT DATE: 20220412
